FAERS Safety Report 6851922-3 (Version None)
Quarter: 2010Q3

REPORT INFORMATION
  Report Type: 
  Country: None (occurrence: None)
  Receive Date: 20100717
  Receipt Date: 20080623
  Transmission Date: 20110219
  Serious: No
  Sender: FDA-Public Use
  Company Number: US-PFIZER INC-2008007939

PATIENT
  Sex: Female

DRUGS (1)
  1. CHANTIX [Suspect]

REACTIONS (4)
  - BLOOD GLUCOSE DECREASED [None]
  - DRUG INTOLERANCE [None]
  - FOOD CRAVING [None]
  - FORMICATION [None]
